FAERS Safety Report 7342242-1 (Version None)
Quarter: 2011Q1

REPORT INFORMATION
  Report Type: 
  Country: None (occurrence: None)
  Receive Date: 20110310
  Receipt Date: 20110228
  Transmission Date: 20110831
  Serious: Yes (Hospitalization)
  Sender: FDA-Public Use
  Company Number: 167320

PATIENT
  Age: 51 Year
  Sex: Female

DRUGS (7)
  1. VIOXX [Concomitant]
     Indication: PRODUCT USED FOR UNKNOWN INDICATION
  2. CELEXA [Concomitant]
     Indication: PRODUCT USED FOR UNKNOWN INDICATION
  3. GLUCOPHAGE [Concomitant]
     Indication: PRODUCT USED FOR UNKNOWN INDICATION
  4. AVONEX [Suspect]
     Indication: MULTIPLE SCLEROSIS
     Route: 030
     Dates: start: 20010121, end: 20020618
  5. AVONEX [Suspect]
     Route: 030
     Dates: start: 20061002, end: 20061030
  6. AVONEX [Suspect]
     Route: 030
     Dates: start: 20090529
  7. CYLERT [Concomitant]
     Indication: PRODUCT USED FOR UNKNOWN INDICATION

REACTIONS (7)
  - MYOCARDIAL INFARCTION [None]
  - CARDIAC FAILURE CONGESTIVE [None]
  - DISORIENTATION [None]
  - MUSCLE SPASMS [None]
  - ABASIA [None]
  - MENTAL IMPAIRMENT [None]
  - AGRAPHIA [None]
